FAERS Safety Report 9171928 (Version 1)
Quarter: 2013Q1

REPORT INFORMATION
  Report Type: Spontaneous
  Country: US (occurrence: None)
  Receive Date: 20130304
  Receipt Date: 20130304
  Transmission Date: 20140127
  Serious: Yes (Hospitalization)
  Sender: FDA-Public Use
  Company Number: 2011028035

PATIENT
  Age: 47 Year
  Sex: Female
  Weight: 105.24 kg

DRUGS (27)
  1. HIZENTRA [Suspect]
     Indication: SELECTIVE IGA IMMUNODEFICIENCY
     Dosage: 1X/WEEK, 1 GM 5 ML; 55 ML IN 4 SITES FOR 1 HOUR 23 MINUTES (20% CONCENTRATION))
     Route: 058
     Dates: start: 20100611
  2. POTASSIUM CHLORIDE (POTASSIUM CHLORIDE) [Concomitant]
  3. CIPRO (CIPROFLOXACIN) [Concomitant]
  4. PLAQUENIL (HYDROXYCHLOROQUINE PHOSPHATE) [Concomitant]
  5. CARDIZEM (CILTIAZEM) [Concomitant]
  6. DYAZIDE (DYAZIDE) [Concomitant]
  7. REGLAN (METOCLORAMIDE) [Concomitant]
  8. ASTEPRO (AZELASTINE) [Concomitant]
  9. ALBUTEROL (SALBUTAMOL) [Concomitant]
  10. ZYRTEC (CETIRIZINE HYDROCHLORIDE) [Concomitant]
  11. THEO-DUR (THEOPHYLLINE) [Concomitant]
  12. TRAMADOL (TRAMADOL) [Concomitant]
  13. ZANTAC (RANITIDINE HYDROCHLORIDE) [Concomitant]
  14. FLONASE (FLUTICASONE PROPIONATE) [Concomitant]
  15. SYMBICORT (BUDESONIDE W/FORMOTEROL FUMARATE) [Concomitant]
  16. PULMICORT (BUDESONIDE) [Concomitant]
  17. NEXIUM (ESOMEPRAZOLE MAGNESIUM) [Concomitant]
  18. ARMOUR (THYROID) [Concomitant]
  19. DIGOXIN (DIGOXIN) [Concomitant]
  20. ZYFLO (ZILEUTON) [Concomitant]
  21. DIFLUCAN (FLUCONAZOLE) [Concomitant]
  22. ALDACTONE (SPIRONOLACTONE) [Concomitant]
  23. LASIX (FUROSEMIDE) [Concomitant]
  24. ENALAPRIL [Concomitant]
  25. METOPROLOL (METOPROLOL) [Concomitant]
  26. DIPHENHYDRAMINE (DIPHENHYDRAMINE) [Concomitant]
  27. EPI-PEN (EPINEPHRINE) [Concomitant]

REACTIONS (7)
  - Back pain [None]
  - Pyrexia [None]
  - Dyspnoea [None]
  - Cardiac failure [None]
  - Weight increased [None]
  - Oedema peripheral [None]
  - Infusion site erythema [None]
